FAERS Safety Report 6576539-X (Version None)
Quarter: 2010Q1

REPORT INFORMATION
  Report Type: 
  Country: None (occurrence: None)
  Receive Date: 20100210
  Receipt Date: 20100128
  Transmission Date: 20100710
  Serious: Yes (Life-Threatening, Hospitalization, Other)
  Sender: FDA-Public Use
  Company Number: DE-ASTRAZENECA-2010SE03882

PATIENT
  Age: 18522 Day
  Sex: Male
  Weight: 90 kg

DRUGS (1)
  1. METOPROLOL RETARD [Suspect]
     Dosage: 90 TABLETS 8850 MG
     Route: 048
     Dates: start: 20100127

REACTIONS (5)
  - BRADYCARDIA [None]
  - HYPOTENSION [None]
  - OVERDOSE [None]
  - SOMNOLENCE [None]
  - SUICIDE ATTEMPT [None]
